FAERS Safety Report 10100626 (Version 1)
Quarter: 2014Q2

REPORT INFORMATION
  Report Type: Spontaneous
  Country: US (occurrence: US)
  Receive Date: 20140423
  Receipt Date: 20140423
  Transmission Date: 20141212
  Serious: Yes (Other)
  Sender: FDA-Public Use
  Company Number: US-BAXTER-2014BAX019642

PATIENT
  Age: 69 Year
  Sex: Male

DRUGS (4)
  1. VANCOMYCIN INJECTION, USP [Suspect]
     Indication: PNEUMONIA
     Route: 065
  2. LEVOFLOXACIN [Suspect]
     Indication: PNEUMONIA
     Route: 065
  3. PIPERACILLIN PLUS TAZOBACTAM [Suspect]
     Indication: PNEUMONIA
     Route: 065
  4. TAZOBACTAM [Suspect]
     Indication: PNEUMONIA
     Route: 065

REACTIONS (1)
  - Linear IgA disease [Recovered/Resolved]
